FAERS Safety Report 21914079 (Version 1)
Quarter: 2023Q1

REPORT INFORMATION
  Report Type: Spontaneous
  Country: CA (occurrence: CA)
  Receive Date: 20230126
  Receipt Date: 20230126
  Transmission Date: 20230418
  Serious: Yes (Other)
  Sender: FDA-Public Use
  Company Number: CA-CELLTRION INC.-2022CA021298

PATIENT

DRUGS (3)
  1. INFLECTRA [Suspect]
     Active Substance: INFLIXIMAB-DYYB
     Indication: Colitis ulcerative
     Dosage: 300 MG, Q2, Q6 WEEK DOSE THEN Q8 WEEKS/W2, W6 AND Q8 WEEKS
     Route: 042
     Dates: start: 20221130
  2. INFLECTRA [Suspect]
     Active Substance: INFLIXIMAB-DYYB
     Dosage: 300 MG, Q2, Q6 WEEK DOSE THEN Q8 WEEKS/W2, W6 AND Q8 WEEKS
     Route: 042
     Dates: start: 20221217
  3. INFLECTRA [Suspect]
     Active Substance: INFLIXIMAB-DYYB
     Dosage: 400 MG, WEEK 6 INFUSION, EVERY 8 WEEKS
     Route: 042
     Dates: start: 20230117

REACTIONS (5)
  - Weight increased [Unknown]
  - Abscess jaw [Recovering/Resolving]
  - Off label use [Unknown]
  - Off label use [Unknown]
  - Intentional product use issue [Unknown]

NARRATIVE: CASE EVENT DATE: 20221130
